FAERS Safety Report 4482454-8 (Version None)
Quarter: 2004Q4

REPORT INFORMATION
  Report Type: 
  Country: None (occurrence: None)
  Receive Date: 20041022
  Receipt Date: 20041014
  Transmission Date: 20050328
  Serious: Yes (Hospitalization)
  Sender: FDA-Public Use
  Company Number: US-MERCK-0410USA02256

PATIENT
  Age: 35 Year
  Sex: Female

DRUGS (8)
  1. VIOXX [Suspect]
     Indication: PAIN
     Route: 048
  2. XANAX [Concomitant]
     Route: 065
  3. PENTOXYL [Concomitant]
     Route: 065
  4. PREDNISONE [Concomitant]
     Route: 065
  5. DEPAKOTE [Concomitant]
     Route: 065
  6. HYDROCORTONE [Concomitant]
     Route: 048
  7. CLONAZEPAM [Concomitant]
     Route: 065
  8. COLCHICINE [Concomitant]
     Route: 065

REACTIONS (8)
  - BEHCET'S SYNDROME [None]
  - CHEST DISCOMFORT [None]
  - CHEST PAIN [None]
  - DYSPNOEA [None]
  - EARLY MORNING AWAKENING [None]
  - FALL [None]
  - HYPOAESTHESIA [None]
  - PAIN IN EXTREMITY [None]
